FAERS Safety Report 21556481 (Version 8)
Quarter: 2023Q4

REPORT INFORMATION
  Report Type: Report from Study
  Country: US (occurrence: US)
  Receive Date: 20221104
  Receipt Date: 20231018
  Transmission Date: 20240110
  Serious: No
  Sender: FDA-Public Use
  Company Number: US-002147023-NVSC2022US245933

PATIENT
  Age: 55 Year
  Sex: Male

DRUGS (6)
  1. KESIMPTA [Suspect]
     Active Substance: OFATUMUMAB
     Indication: Multiple sclerosis
     Dosage: 20 MG, QW
     Route: 065
     Dates: start: 20221026
  2. KESIMPTA [Suspect]
     Active Substance: OFATUMUMAB
     Dosage: 20 MG, QW
     Route: 058
  3. KESIMPTA [Suspect]
     Active Substance: OFATUMUMAB
     Dosage: 20 MG, QMO
     Route: 058
     Dates: start: 20221026
  4. KESIMPTA [Suspect]
     Active Substance: OFATUMUMAB
     Dosage: UNK
     Route: 065
     Dates: start: 20221113
  5. KESIMPTA [Suspect]
     Active Substance: OFATUMUMAB
     Dosage: 20 MG, QMO
     Route: 058
  6. KESIMPTA [Suspect]
     Active Substance: OFATUMUMAB
     Dosage: UNK (LAST DOSE OF KESIMPTA)
     Route: 065
     Dates: start: 20221202, end: 202304

REACTIONS (10)
  - Influenza like illness [Recovering/Resolving]
  - Asthenia [Recovering/Resolving]
  - Dysstasia [Recovering/Resolving]
  - Dizziness [Recovering/Resolving]
  - Brain fog [Recovering/Resolving]
  - Myalgia [Unknown]
  - Sciatica [Unknown]
  - Pain [Unknown]
  - Migraine [Recovered/Resolved]
  - Inappropriate schedule of product administration [Unknown]

NARRATIVE: CASE EVENT DATE: 20221026
